FAERS Safety Report 7898899-X (Version None)
Quarter: 2011Q4

REPORT INFORMATION
  Report Type: 
  Country: None (occurrence: None)
  Receive Date: 20111107
  Receipt Date: 20111102
  Transmission Date: 20120403
  Serious: Yes (Death)
  Sender: FDA-Public Use
  Company Number: CH-ASTRAZENECA-2011SE66155

PATIENT
  Age: 86 Year
  Sex: Female

DRUGS (22)
  1. MARCUMAR [Suspect]
     Indication: ATRIAL FIBRILLATION
     Route: 048
     Dates: start: 20110501, end: 20110901
  2. MARCUMAR [Suspect]
     Indication: ATRIAL FLUTTER
     Route: 048
     Dates: start: 20110501, end: 20110901
  3. TORSEMIDE [Suspect]
     Indication: CARDIAC FAILURE
     Route: 048
     Dates: start: 20110809, end: 20110809
  4. PARAGOL [Concomitant]
     Indication: CONSTIPATION
     Route: 048
     Dates: start: 20110829, end: 20110909
  5. SEROQUEL [Suspect]
     Dosage: 25 MG DAILY, INCREASING DOSAGE UP TO 35 MG DAILY
     Route: 048
     Dates: start: 20110831, end: 20110906
  6. DIGOXIN [Suspect]
     Route: 048
     Dates: start: 20110909
  7. KCL HAUSMANN [Suspect]
     Indication: HYPOKALAEMIA
     Route: 048
     Dates: start: 20110826, end: 20110909
  8. HALDOL [Concomitant]
     Indication: DELIRIUM
     Dosage: 11 GTT DROPS/DAILY
     Route: 048
     Dates: start: 20110906, end: 20110909
  9. KONAKION [Concomitant]
     Indication: INTERNATIONAL NORMALISED RATIO INCREASED
     Dates: start: 20110901
  10. DIGOXIN [Suspect]
     Dosage: INCREASING DOSAGE FROM 0.125 MG DAILY TO 0.25 MG DAILY
     Route: 048
     Dates: start: 20110905, end: 20110909
  11. PREDNISONE [Suspect]
     Route: 048
     Dates: start: 20110906
  12. KALIUM HAUSMANN EFFERVETTES [Suspect]
     Indication: HYPOKALAEMIA
     Route: 048
     Dates: end: 20110809
  13. JANUVIA [Concomitant]
     Route: 048
     Dates: start: 20110601, end: 20110909
  14. CONCOR [Concomitant]
     Route: 048
     Dates: end: 20110909
  15. ACETAMINOPHEN [Concomitant]
     Route: 048
     Dates: start: 20110801, end: 20110902
  16. PROCTOGLYVENOL [Concomitant]
     Indication: CAPILLARY DISORDER
     Route: 061
     Dates: start: 20110901, end: 20110909
  17. RAMIPRIL [Concomitant]
     Dates: end: 20110810
  18. SEROQUEL [Suspect]
     Route: 048
     Dates: end: 20110831
  19. DIGOXIN [Suspect]
     Indication: CARDIAC FAILURE
     Route: 048
     Dates: start: 20110810, end: 20110905
  20. PREDNISONE [Suspect]
     Indication: CHRONIC OBSTRUCTIVE PULMONARY DISEASE
     Route: 048
     Dates: end: 20110906
  21. ACETAMINOPHEN [Concomitant]
     Route: 048
     Dates: start: 20110902, end: 20110908
  22. NOVALGIN [Concomitant]
     Dosage: 60 GGT DROPS/DAILY
     Route: 048
     Dates: start: 20110909, end: 20110909

REACTIONS (6)
  - THROMBOCYTOPENIA [None]
  - MELAENA [None]
  - GASTRIC ULCER [None]
  - HAEMORRHAGIC ANAEMIA [None]
  - INTERNATIONAL NORMALISED RATIO INCREASED [None]
  - GASTROINTESTINAL HAEMORRHAGE [None]
